FAERS Safety Report 5393726-7 (Version None)
Quarter: 2007Q3

REPORT INFORMATION
  Report Type: 
  Country: None (occurrence: None)
  Receive Date: 20070723
  Receipt Date: 20070717
  Transmission Date: 20080115
  Serious: Yes (Hospitalization)
  Sender: FDA-Public Use
  Company Number: DE-BAYER-200710512BVD

PATIENT
  Age: 73 Year
  Sex: Female
  Weight: 105 kg

DRUGS (13)
  1. NEXAVAR [Suspect]
     Indication: RENAL CELL CARCINOMA STAGE III
     Dosage: TOTAL DAILY DOSE: 800 MG
     Route: 048
     Dates: start: 20070129
  2. INTERFERON ALPHA [Concomitant]
     Route: 065
  3. PROLEUKIN [Concomitant]
     Route: 065
  4. IRBESARTAN [Concomitant]
     Route: 065
  5. ASPIRIN [Concomitant]
     Route: 065
  6. METOPROLOL TARTRATE [Concomitant]
     Route: 065
  7. TORSEMIDE [Concomitant]
     Route: 065
  8. OMEP [Concomitant]
     Route: 065
  9. HYDROCORTISON [Concomitant]
     Route: 065
  10. ASTONIN H [Concomitant]
     Route: 065
  11. SIMVAHEXAL [Concomitant]
     Route: 065
  12. AMLODIPINE [Concomitant]
     Route: 065
  13. ACTOS [Concomitant]
     Route: 065

REACTIONS (9)
  - CONFUSIONAL STATE [None]
  - DIZZINESS [None]
  - HEPATIC ENZYME INCREASED [None]
  - HYPOKALAEMIA [None]
  - HYPONATRAEMIA [None]
  - PYREXIA [None]
  - RETROGRADE AMNESIA [None]
  - SWELLING FACE [None]
  - VOMITING [None]
